FAERS Safety Report 9729215 (Version 2)
Quarter: 2013Q4

REPORT INFORMATION
  Report Type: Report from Study
  Country: US (occurrence: US)
  Receive Date: 20131204
  Receipt Date: 20131213
  Transmission Date: 20140711
  Serious: Yes (Disabling)
  Sender: FDA-Public Use
  Company Number: US-ROCHE-1312908

PATIENT
  Age: 78 Year
  Sex: Female

DRUGS (1)
  1. LUCENTIS [Suspect]
     Indication: MACULAR DEGENERATION
     Dosage: LEFT EYE
     Route: 065
     Dates: start: 20131125

REACTIONS (4)
  - Blindness [Unknown]
  - Eye pain [Recovered/Resolved]
  - Eye irritation [Recovered/Resolved]
  - Lacrimation increased [Recovered/Resolved]
